FAERS Safety Report 9035000 (Version 1)
Quarter: 2013Q1

REPORT INFORMATION
  Report Type: Report from Study
  Country: US (occurrence: US)
  Receive Date: 20130129
  Receipt Date: 20130129
  Transmission Date: 20140127
  Serious: No
  Sender: FDA-Public Use
  Company Number: US-ABBOTT-12P-163-0890688-00

PATIENT
  Age: 65 Year
  Sex: Female

DRUGS (13)
  1. HUMIRA 40 MG/0.8 ML PEN [Suspect]
     Indication: PSORIATIC ARTHROPATHY
     Dates: start: 201008
  2. BONIVA [Concomitant]
     Indication: OSTEOPOROSIS
  3. RESCON [Concomitant]
     Indication: SINUS OPERATION
     Dosage: 1 CAPSULE DAILY
  4. MINOCYCLINE [Concomitant]
     Indication: PHOTOSENSITIVITY REACTION
     Dosage: 100 MG DAILY AS NEEDED
  5. MINOCYCLINE [Concomitant]
     Indication: RASH
  6. ASPIRIN [Concomitant]
     Indication: PAIN
     Dosage: 500 MG DAILY IN THE MORNING AND AT NIGHT
  7. LISINOPRIL [Concomitant]
     Indication: HYPERTENSION
     Dosage: 10 MG DAILY
  8. ZETIA [Concomitant]
     Indication: BLOOD CHOLESTEROL
     Dosage: DAILY
  9. CO-ENZIME Q-10 [Concomitant]
     Indication: VITAMIN SUPPLEMENTATION
  10. ROSEVESTEROL [Concomitant]
     Indication: SUPPLEMENTATION THERAPY
  11. ADVANCED VITAMIN D [Concomitant]
     Indication: VITAMIN SUPPLEMENTATION
  12. OMEGA 3 [Concomitant]
     Indication: SUPPLEMENTATION THERAPY
     Dosage: DAILY
  13. FISH OIL [Concomitant]
     Indication: SUPPLEMENTATION THERAPY
     Dosage: DAILY

REACTIONS (3)
  - Nasopharyngitis [Recovering/Resolving]
  - Rhinorrhoea [Recovering/Resolving]
  - Dyspnoea [Recovering/Resolving]
